FAERS Safety Report 12997007 (Version 1)
Quarter: 2016Q4

REPORT INFORMATION
  Report Type: Spontaneous
  Country: JP (occurrence: JP)
  Receive Date: 20161205
  Receipt Date: 20161205
  Transmission Date: 20170207
  Serious: Yes (Hospitalization, Other)
  Sender: FDA-Public Use
  Company Number: JP-ACCORD-045292

PATIENT
  Age: 48 Year
  Sex: Female
  Weight: 51 kg

DRUGS (2)
  1. CARBOPLATIN. [Suspect]
     Active Substance: CARBOPLATIN
     Indication: NEUROENDOCRINE CARCINOMA
     Dosage: CBDCA 400 MG (AUC 5, DAY 1)
  2. ETOPOSIDE. [Suspect]
     Active Substance: ETOPOSIDE
     Indication: NEUROENDOCRINE CARCINOMA
     Dosage: 120 MG (80 MG/M2, DAY 1 TO 3)

REACTIONS (2)
  - Endophthalmitis [Recovering/Resolving]
  - Febrile neutropenia [Unknown]
